FAERS Safety Report 5875186-2 (Version None)
Quarter: 2008Q3

REPORT INFORMATION
  Report Type: 
  Country: None (occurrence: None)
  Receive Date: 20080909
  Receipt Date: 20080606
  Transmission Date: 20090109
  Serious: No
  Sender: FDA-Public Use
  Company Number: A0731742A

PATIENT
  Age: 38 Year
  Sex: Female

DRUGS (2)
  1. ALBENZA [Suspect]
     Dosage: 400MG PER DAY
     Route: 048
     Dates: start: 20080530
  2. VERMOX [Concomitant]

REACTIONS (1)
  - DRUG INEFFECTIVE [None]
